FAERS Safety Report 9527013 (Version 1)
Quarter: 2013Q3

REPORT INFORMATION
  Report Type: Spontaneous
  Country: JP (occurrence: JP)
  Receive Date: 20130916
  Receipt Date: 20130916
  Transmission Date: 20140515
  Serious: Yes (Other)
  Sender: FDA-Public Use
  Company Number: JP-BAXTER-2013BAX035556

PATIENT
  Age: 4 Month
  Sex: Female

DRUGS (2)
  1. KIOVIG SOLUTION FOR INFUSION 10% [Suspect]
     Indication: KAWASAKI^S DISEASE
     Dosage: 2 G/KG
     Route: 042
  2. ASPIRIN [Suspect]
     Indication: KAWASAKI^S DISEASE

REACTIONS (2)
  - Coronary artery disease [Unknown]
  - C-reactive protein increased [Unknown]
